FAERS Safety Report 7058353-4 (Version None)
Quarter: 2010Q4

REPORT INFORMATION
  Report Type: 
  Country: None (occurrence: None)
  Receive Date: 20101022
  Receipt Date: 20101015
  Transmission Date: 20110411
  Serious: No
  Sender: FDA-Public Use
  Company Number: US-PFIZER INC-2010132049

PATIENT
  Sex: Female
  Weight: 113.38 kg

DRUGS (17)
  1. TIKOSYN [Suspect]
     Indication: ATRIAL FIBRILLATION
     Dosage: 0.25 MG, 2X/DAY
     Route: 048
     Dates: start: 20100701
  2. WARFARIN [Concomitant]
     Dosage: UNK
  3. ATACAND [Concomitant]
     Indication: HYPERTENSION
     Dosage: UNK
  4. REMICADE [Concomitant]
     Indication: RHEUMATOID ARTHRITIS
     Dosage: UNK
  5. PREVACID [Concomitant]
     Dosage: UNK
  6. ASCORBIC ACID [Concomitant]
     Dosage: UNK
  7. PREDNISONE [Concomitant]
     Dosage: 5 MG, UNK
  8. MELOXICAM [Concomitant]
     Dosage: UNK
  9. METHOTREXATE [Concomitant]
     Dosage: UNK
  10. FOLIC ACID [Concomitant]
     Dosage: UNK
  11. FEXOFENADINE [Concomitant]
     Dosage: UNK
  12. CALCIUM [Concomitant]
     Dosage: UNK
  13. MAGNESIUM [Concomitant]
     Dosage: UNK
  14. ZINC [Concomitant]
     Dosage: UNK
  15. LASIX [Concomitant]
     Dosage: UNK
  16. LYRICA [Concomitant]
     Dosage: UNK
  17. POTASSIUM [Concomitant]
     Dosage: UNK

REACTIONS (1)
  - FUNGAL INFECTION [None]
